FAERS Safety Report 4507123-7 (Version None)
Quarter: 2004Q4

REPORT INFORMATION
  Report Type: 
  Country: None (occurrence: None)
  Receive Date: 20041112
  Receipt Date: 20041025
  Transmission Date: 20050328
  Serious: Yes (Death, Hospitalization)
  Sender: FDA-Public Use
  Company Number: WAES 0410USA03691

PATIENT
  Age: 60 Year
  Sex: Female
  Weight: 99.3377 kg

DRUGS (18)
  1. DECADRON [Suspect]
     Indication: PROPHYLAXIS
     Dosage: PO
     Route: 048
  2. DOXIL [Suspect]
     Indication: BREAST CANCER METASTATIC
     Dosage: 85 MG/IV
     Route: 042
     Dates: start: 20030828, end: 20030925
  3. TAXOTERE [Suspect]
     Indication: BREAST CANCER METASTATIC
     Dosage: 75 MG/IV; 57 MG/IV
     Route: 042
     Dates: start: 20031023
  4. GLUCOTROL [Suspect]
     Indication: BREAST CANCER METASTATIC
     Dosage: PRN
     Dates: start: 20040407
  5. ALDOMET [Concomitant]
  6. ARANESP [Concomitant]
  7. AREDIA [Concomitant]
  8. COPAXONE [Concomitant]
  9. DESYREL [Concomitant]
  10. DITROPAN [Concomitant]
  11. KLONOPIN [Concomitant]
  12. LASIX [Concomitant]
  13. LORTAB [Concomitant]
  14. PROVIGIL [Concomitant]
  15. ZANTAC [Concomitant]
  16. MAGNESIUM OXIDE [Concomitant]
  17. POTASSIUM CHLORIDE [Concomitant]
  18. VERAPAMIL [Concomitant]

REACTIONS (7)
  - ACCIDENTAL OVERDOSE [None]
  - BREAST CANCER METASTATIC [None]
  - DIABETES MELLITUS [None]
  - HYPOGLYCAEMIA [None]
  - MALIGNANT NEOPLASM PROGRESSION [None]
  - METASTASES TO LIVER [None]
  - PALMAR-PLANTAR ERYTHRODYSAESTHESIA SYNDROME [None]
